FAERS Safety Report 5237595-4 (Version None)
Quarter: 2007Q1

REPORT INFORMATION
  Report Type: 
  Country: None (occurrence: None)
  Receive Date: 20070213
  Receipt Date: 20070201
  Transmission Date: 20070707
  Serious: Yes (Other)
  Sender: FDA-Public Use
  Company Number: US-PFIZER INC-2007009611

PATIENT
  Sex: Female
  Weight: 91.6 kg

DRUGS (11)
  1. CHANTIX [Suspect]
     Indication: SMOKING CESSATION THERAPY
  2. MIRTAZAPINE [Concomitant]
  3. ZYPREXA [Concomitant]
  4. SEROQUEL [Concomitant]
  5. LUNESTA [Concomitant]
  6. NEURONTIN [Concomitant]
  7. DETROL LA [Concomitant]
  8. NEXIUM [Concomitant]
  9. GLUCOTROL XL [Concomitant]
  10. BENZONATATE [Concomitant]
  11. KLONOPIN [Concomitant]

REACTIONS (2)
  - PANIC ATTACK [None]
  - SUICIDAL IDEATION [None]
